FAERS Safety Report 10184005 (Version 3)
Quarter: 2015Q1

REPORT INFORMATION
  Report Type: Spontaneous
  Country: US (occurrence: US)
  Receive Date: 20140520
  Receipt Date: 20150112
  Transmission Date: 20150720
  Serious: Yes (Hospitalization, Other)
  Sender: FDA-Public Use
  Company Number: US-GLAXOSMITHKLINE-A1073927A

PATIENT
  Age: 63 Year
  Sex: Female

DRUGS (6)
  1. SINGULAIR [Concomitant]
     Active Substance: MONTELUKAST SODIUM
  2. ALLEGRA-D [Concomitant]
     Active Substance: FEXOFENADINE\PSEUDOEPHEDRINE
  3. XARELTO [Concomitant]
     Active Substance: RIVAROXABAN
  4. ADVAIR HFA [Suspect]
     Active Substance: FLUTICASONE PROPIONATE\SALMETEROL XINAFOATE
     Indication: ASTHMA
     Dosage: UNK UNK, QD
     Route: 055
     Dates: start: 20110120
  5. SYNTHROID [Concomitant]
     Active Substance: LEVOTHYROXINE SODIUM
  6. PRILOSEC [Concomitant]
     Active Substance: OMEPRAZOLE MAGNESIUM

REACTIONS (15)
  - Haemorrhage [Unknown]
  - Thrombosis [Not Recovered/Not Resolved]
  - Pain in extremity [Unknown]
  - Transfusion [Recovered/Resolved]
  - Large intestinal ulcer haemorrhage [Recovered/Resolved]
  - Vena cava filter insertion [Unknown]
  - Peripheral arterial occlusive disease [Unknown]
  - Road traffic accident [Unknown]
  - Pelvic fracture [Unknown]
  - Fall [Unknown]
  - Sternal fracture [Unknown]
  - Spinal fracture [Unknown]
  - Gastric ulcer [Unknown]
  - Iron deficiency [Recovered/Resolved]
  - Ulcer haemorrhage [Unknown]

NARRATIVE: CASE EVENT DATE: 2013
